FAERS Safety Report 14388841 (Version 2)
Quarter: 2018Q2

REPORT INFORMATION
  Report Type: Spontaneous
  Country: US (occurrence: US)
  Receive Date: 20180115
  Receipt Date: 20180605
  Transmission Date: 20180711
  Serious: Yes (Other)
  Sender: FDA-Public Use
  Company Number: US-SA-2017SA218897

PATIENT
  Age: 57 Year
  Sex: Female
  Weight: 66 kg

DRUGS (12)
  1. DULERA [Concomitant]
     Active Substance: FORMOTEROL FUMARATE DIHYDRATE\MOMETASONE FUROATE
     Dosage: UNK UNK,UNK
     Route: 065
     Dates: start: 200111
  2. NEUPOGEN [Concomitant]
     Active Substance: FILGRASTIM
     Indication: ANTIEMETIC SUPPORTIVE CARE
     Dosage: UNK
     Route: 058
     Dates: start: 20130905, end: 20130926
  3. SODIUM CHLORIDE. [Concomitant]
     Active Substance: SODIUM CHLORIDE
     Dosage: 500 ML, UNK
     Route: 042
     Dates: start: 20130905, end: 20130905
  4. TAXOTERE [Suspect]
     Active Substance: DOCETAXEL
     Indication: BREAST CANCER
     Dosage: 131.2 DF,Q3W
     Route: 051
     Dates: start: 20130905, end: 20130905
  5. NORCO [Concomitant]
     Active Substance: ACETAMINOPHEN\HYDROCODONE BITARTRATE
     Indication: PAIN
     Dosage: UNK UNK,UNK
     Route: 048
     Dates: start: 200111
  6. ADRIAMYCIN CS [Concomitant]
     Indication: CHEMOTHERAPY
  7. LOVASTATIN. [Concomitant]
     Active Substance: LOVASTATIN
     Dosage: UNK UNK,UNK
     Route: 065
     Dates: start: 200111
  8. CYTOXAN [Concomitant]
     Active Substance: CYCLOPHOSPHAMIDE
     Indication: CHEMOTHERAPY
     Dosage: 1.050 MG, Q3W
  9. TAXOTERE [Suspect]
     Active Substance: DOCETAXEL
     Dosage: 131.2 DF,Q3W
     Route: 051
     Dates: start: 20131106, end: 20131106
  10. NEOSAR [Concomitant]
     Active Substance: CYCLOPHOSPHAMIDE
     Indication: CHEMOTHERAPY
     Dosage: 600 MG/M2, QCY
     Route: 042
     Dates: start: 20130905, end: 20130905
  11. HYDROCHLOROTHIAZIDE. [Concomitant]
     Active Substance: HYDROCHLOROTHIAZIDE
     Indication: HYPERTENSION
     Dosage: UNK UNK,UNK
     Route: 065
     Dates: start: 200111
  12. TYLENOL 8HR [Concomitant]
     Active Substance: ACETAMINOPHEN
     Indication: HEADACHE
     Dosage: UNK UNK, PRN

REACTIONS (2)
  - Alopecia [Recovering/Resolving]
  - Psychological trauma [Unknown]

NARRATIVE: CASE EVENT DATE: 201309
